FAERS Safety Report 5206169-3 (Version None)
Quarter: 2006Q4

REPORT INFORMATION
  Report Type: 
  Country: None (occurrence: None)
  Receive Date: 20061026
  Receipt Date: 20060919
  Transmission Date: 20070319
  Serious: No
  Sender: FDA-Public Use
  Company Number: 2006113438

PATIENT
  Age: 48 Year
  Sex: Male
  Weight: 104.3273 kg

DRUGS (11)
  1. LYRICA [Suspect]
     Indication: PAIN
     Dosage: 100 MG (50 MG, 2 IN 1D)
     Dates: start: 20060706, end: 20060916
  2. FEXOFENADINE HCL [Concomitant]
  3. INDAPAMIDE [Concomitant]
  4. VITAMIN E [Concomitant]
  5. AMLODIPINE BESILATE (AMLODIPINE) [Concomitant]
  6. HYDRALAZINE (HYDRAZALINE) [Concomitant]
  7. CELECOXIB (CELECOXIB) [Concomitant]
  8. ESOMEPRAZOLE MAGNESIUM (ESOMEPRAZOLE MAGNESIUM) [Concomitant]
  9. TOPIRAMATE [Concomitant]
  10. METHOCARBAMOL [Concomitant]
  11. DULOXETINE HYDROCHLORIDE (DULOXETINE HYDROCHLORIDE) [Concomitant]

REACTIONS (2)
  - PRURITUS [None]
  - RASH [None]
